FAERS Safety Report 17192317 (Version 1)
Quarter: 2019Q4

REPORT INFORMATION
  Report Type: Report from Study
  Country: PK (occurrence: PK)
  Receive Date: 20191223
  Receipt Date: 20191223
  Transmission Date: 20200122
  Serious: Yes (Other)
  Sender: FDA-Public Use
  Company Number: NVSC2019PK017496

PATIENT
  Age: 4 Year
  Sex: Female

DRUGS (1)
  1. ASUNRA [Suspect]
     Active Substance: DEFERASIROX
     Indication: THALASSAEMIA
     Dosage: 1 DF (400 MG), QD
     Route: 048
     Dates: start: 20170317, end: 20191016

REACTIONS (5)
  - Hepatitis [Recovered/Resolved]
  - Pyrexia [Recovered/Resolved]
  - Liver injury [Recovered/Resolved]
  - Alanine aminotransferase abnormal [Recovered/Resolved]
  - Fatigue [Recovered/Resolved]

NARRATIVE: CASE EVENT DATE: 20191002
